FAERS Safety Report 10140168 (Version 1)
Quarter: 2014Q2

REPORT INFORMATION
  Report Type: Spontaneous
  Country: CN (occurrence: CN)
  Receive Date: 20140429
  Receipt Date: 20140429
  Transmission Date: 20141212
  Serious: Yes (Other)
  Sender: FDA-Public Use
  Company Number: CN-PFIZER INC-2014114643

PATIENT
  Age: 72 Year
  Sex: Male
  Weight: 71 kg

DRUGS (1)
  1. CEFOBID [Suspect]
     Indication: LUNG INFECTION
     Dosage: 2 G, 2X/DAY
     Route: 041
     Dates: start: 20130528, end: 20130530

REACTIONS (1)
  - Gastrointestinal haemorrhage [Recovering/Resolving]
